FAERS Safety Report 24444192 (Version 2)
Quarter: 2024Q4

REPORT INFORMATION
  Report Type: Report from Study
  Country: ZA (occurrence: ZA)
  Receive Date: 20241016
  Receipt Date: 20241017
  Transmission Date: 20250114
  Serious: No
  Sender: ROCHE
  Company Number: ZA-ROCHE-2628705

PATIENT
  Age: 64 Year
  Sex: Female

DRUGS (2)
  1. MABTHERA [Suspect]
     Active Substance: RITUXIMAB
     Indication: Rheumatoid arthritis
     Dosage: 1000 MG ON DAY 0 AND ANOTHER 1000MG IN DAY 14 (EVERY 6 MONTHS)
     Route: 041
  2. RITUXIMAB [Suspect]
     Active Substance: RITUXIMAB
     Indication: Rheumatoid arthritis
     Dosage: VIALS, THERE AFTER EVERY 6 MONTHS
     Route: 041

REACTIONS (6)
  - Blood creatinine increased [Unknown]
  - Rheumatoid arthritis [Unknown]
  - C-reactive protein increased [Unknown]
  - White blood cell count decreased [Unknown]
  - Blood creatinine increased [Unknown]
  - Infection [Unknown]

NARRATIVE: CASE EVENT DATE: 20200608
